FAERS Safety Report 7903179-X (Version None)
Quarter: 2011Q4

REPORT INFORMATION
  Report Type: 
  Country: None (occurrence: None)
  Receive Date: 20111103
  Receipt Date: 20111023
  Transmission Date: 20120403
  Serious: Yes (Disabling, Other)
  Sender: FDA-Public Use
  Company Number: 2011SP049974

PATIENT
  Sex: Female

DRUGS (2)
  1. INTRON A [Suspect]
     Indication: HEPATITIS C
     Dosage: UNK;UNK
     Dates: start: 19910101, end: 19910401
  2. INTRON A [Suspect]
     Indication: HEPATITIS C
     Dosage: UNK;UNK
     Dates: start: 20111010

REACTIONS (2)
  - BIPOLAR I DISORDER [None]
  - DRUG INEFFECTIVE [None]
